FAERS Safety Report 20588459 (Version 2)
Quarter: 2022Q2

REPORT INFORMATION
  Report Type: Spontaneous
  Country: US (occurrence: US)
  Receive Date: 20220314
  Receipt Date: 20220610
  Transmission Date: 20220721
  Serious: No
  Sender: FDA-Public Use
  Company Number: US-Global Blood Therapeutics Inc-US-GBT-22-00610

PATIENT
  Age: 34 Year
  Sex: Female

DRUGS (11)
  1. OXBRYTA [Suspect]
     Active Substance: VOXELOTOR
     Indication: Sickle cell disease
     Dosage: 90 TABLETS FOR A 30 DAY SUPPLY, QD
     Route: 048
     Dates: start: 20210225, end: 20210315
  2. OXBRYTA [Suspect]
     Active Substance: VOXELOTOR
     Dosage: 90 TABLETS FOR A 30 DAY SUPPLY, QD
     Route: 048
     Dates: start: 20210426, end: 202201
  3. DULCOLAX NOS [Concomitant]
     Active Substance: BISACODYL OR DOCUSATE SODIUM
     Indication: Product used for unknown indication
  4. ALBUTEROL [Concomitant]
     Active Substance: ALBUTEROL
     Indication: Product used for unknown indication
  5. DEFERASIROX [Concomitant]
     Active Substance: DEFERASIROX
     Indication: Product used for unknown indication
  6. BENADRYL [Concomitant]
     Active Substance: DIPHENHYDRAMINE HYDROCHLORIDE
     Indication: Pruritus
  7. VITAMIN D [Concomitant]
     Active Substance: VITAMIN D NOS
     Indication: Product used for unknown indication
  8. FOLIC ACID [Concomitant]
     Active Substance: FOLIC ACID
     Indication: Product used for unknown indication
  9. KEPPRA [Concomitant]
     Active Substance: LEVETIRACETAM
     Indication: Product used for unknown indication
  10. GLUCOSAMIDE [Concomitant]
     Indication: Product used for unknown indication
  11. GABAPENTIN [Concomitant]
     Active Substance: GABAPENTIN
     Indication: Product used for unknown indication

REACTIONS (2)
  - Product dose omission issue [Unknown]
  - Insurance issue [Unknown]

NARRATIVE: CASE EVENT DATE: 20220101
